FAERS Safety Report 21021617 (Version 1)
Quarter: 2022Q2

REPORT INFORMATION
  Report Type: Spontaneous
  Country: CA (occurrence: None)
  Receive Date: 20220629
  Receipt Date: 20220629
  Transmission Date: 20220721
  Serious: Yes (Hospitalization)
  Sender: FDA-Public Use
  Company Number: CA-ROCHE-3125531

PATIENT
  Sex: Female

DRUGS (32)
  1. RITUXIMAB [Suspect]
     Active Substance: RITUXIMAB
     Indication: Pemphigus
     Route: 041
  2. CANDESARTAN [Concomitant]
     Active Substance: CANDESARTAN
  3. ALLOPURINOL [Concomitant]
     Active Substance: ALLOPURINOL
  4. MYCOPHENOLIC ACID [Concomitant]
     Active Substance: MYCOPHENOLIC ACID
  5. PREGABALIN [Concomitant]
     Active Substance: PREGABALIN
  6. AMLODIPINE [Concomitant]
     Active Substance: AMLODIPINE BESYLATE
  7. ACETAMINOPHEN [Concomitant]
     Active Substance: ACETAMINOPHEN
  8. FLUCONAZOLE [Concomitant]
     Active Substance: FLUCONAZOLE
  9. DEXILANT [Concomitant]
     Active Substance: DEXLANSOPRAZOLE
  10. NITROGLYCERIN [Concomitant]
     Active Substance: NITROGLYCERIN
  11. ASPIRIN [Concomitant]
     Active Substance: ASPIRIN
  12. METHYLPREDNISOLONE SODIUM SUCCINATE [Concomitant]
     Active Substance: METHYLPREDNISOLONE SODIUM SUCCINATE
     Indication: Premedication
     Route: 042
  13. RISEDRONATE SODIUM [Concomitant]
     Active Substance: RISEDRONATE SODIUM
  14. TYLENOL [Concomitant]
     Active Substance: ACETAMINOPHEN
  15. ALBUTEROL [Concomitant]
     Active Substance: ALBUTEROL
  16. NOVORAPID [Concomitant]
     Active Substance: INSULIN ASPART
  17. GLYBURIDE [Concomitant]
     Active Substance: GLYBURIDE
  18. METOPROLOL [Concomitant]
     Active Substance: METOPROLOL
  19. POLYETHYLENE GLYCOLS [Concomitant]
     Active Substance: POLYETHYLENE GLYCOLS
  20. BETAMETHASONE [Concomitant]
     Active Substance: BETAMETHASONE
  21. LOPERAMIDE [Concomitant]
     Active Substance: LOPERAMIDE
  22. ATORVASTATIN [Concomitant]
     Active Substance: ATORVASTATIN
     Route: 048
  23. TRAMADOL [Concomitant]
     Active Substance: TRAMADOL
  24. SYNTHROID [Concomitant]
     Active Substance: LEVOTHYROXINE SODIUM
  25. FUROSEMIDE [Concomitant]
     Active Substance: FUROSEMIDE
  26. ARTHROTEC [Concomitant]
     Active Substance: DICLOFENAC SODIUM\MISOPROSTOL
  27. VITAMIN D3 [Concomitant]
     Active Substance: CHOLECALCIFEROL
  28. MOMETASONE FUROATE [Concomitant]
     Active Substance: MOMETASONE FUROATE
  29. PREDNISONE [Concomitant]
     Active Substance: PREDNISONE
  30. BENADRYL [Concomitant]
     Active Substance: DIPHENHYDRAMINE HYDROCHLORIDE
     Indication: Premedication
     Route: 048
  31. NESINA [Concomitant]
     Active Substance: ALOGLIPTIN BENZOATE
  32. LORAZEPAM [Concomitant]
     Active Substance: LORAZEPAM

REACTIONS (3)
  - Sepsis [Unknown]
  - Urinary tract infection [Unknown]
  - Diarrhoea [Unknown]
